FAERS Safety Report 25961579 (Version 1)
Quarter: 2025Q4

REPORT INFORMATION
  Report Type: Spontaneous
  Country: EU (occurrence: EU)
  Receive Date: 20251027
  Receipt Date: 20251027
  Transmission Date: 20260119
  Serious: Yes (Other)
  Sender: AMGEN
  Company Number: EU-AMGEN-NORSP2025209359

PATIENT

DRUGS (3)
  1. APREMILAST [Suspect]
     Active Substance: APREMILAST
     Indication: Anogenital lichen planus
     Dosage: 30 MILLIGRAM, BID
     Route: 065
  2. APREMILAST [Suspect]
     Active Substance: APREMILAST
     Indication: Lichen planus
  3. APREMILAST [Suspect]
     Active Substance: APREMILAST
     Indication: Off label use

REACTIONS (17)
  - Malignant melanoma [Unknown]
  - Suicidal ideation [Unknown]
  - Adverse event [Unknown]
  - Infection [Unknown]
  - Discomfort [Unknown]
  - Psychiatric symptom [Unknown]
  - Respiratory symptom [Unknown]
  - Muscle disorder [Unknown]
  - Connective tissue disorder [Unknown]
  - Skin disorder [Unknown]
  - Off label use [Unknown]
  - Ill-defined disorder [Unknown]
  - Dizziness [Unknown]
  - Abdominal discomfort [Unknown]
  - Nausea [Unknown]
  - Diarrhoea [Unknown]
  - Headache [Unknown]
